FAERS Safety Report 11442028 (Version 1)
Quarter: 2015Q3

REPORT INFORMATION
  Report Type: Report from Study
  Country: US (occurrence: US)
  Receive Date: 20150901
  Receipt Date: 20150901
  Transmission Date: 20151125
  Serious: Yes (Other)
  Sender: FDA-Public Use
  Company Number: US-SA-2015SA130283

PATIENT
  Age: 41 Year
  Sex: Female

DRUGS (1)
  1. AUBAGIO [Suspect]
     Active Substance: TERIFLUNOMIDE
     Indication: MULTIPLE SCLEROSIS
     Route: 048
     Dates: start: 20150807, end: 20150810

REACTIONS (27)
  - Autonomic neuropathy [Unknown]
  - Pain [Recovering/Resolving]
  - Feeling of despair [Recovering/Resolving]
  - Vein disorder [Recovering/Resolving]
  - Malaise [Recovering/Resolving]
  - Hyperhidrosis [Recovering/Resolving]
  - Dysgeusia [Recovering/Resolving]
  - Speech disorder [Recovering/Resolving]
  - Unevaluable event [Recovering/Resolving]
  - Apparent death [Recovering/Resolving]
  - Ear discomfort [Recovering/Resolving]
  - Asthenia [Recovering/Resolving]
  - Formication [Recovering/Resolving]
  - Headache [Recovering/Resolving]
  - Vertigo [Unknown]
  - Dehydration [Unknown]
  - Dyskinesia [Recovering/Resolving]
  - Contusion [Recovering/Resolving]
  - Pain of skin [Recovering/Resolving]
  - Pyrexia [Recovering/Resolving]
  - Blood pressure increased [Recovering/Resolving]
  - Memory impairment [Unknown]
  - Dyspnoea [Recovering/Resolving]
  - Coordination abnormal [Unknown]
  - Influenza like illness [Recovering/Resolving]
  - Headache [Recovering/Resolving]
  - Rhinorrhoea [Recovering/Resolving]

NARRATIVE: CASE EVENT DATE: 201508
